FAERS Safety Report 11590534 (Version 1)
Quarter: 2015Q4

REPORT INFORMATION
  Report Type: Spontaneous
  Country: IT (occurrence: IT)
  Receive Date: 20151002
  Receipt Date: 20151002
  Transmission Date: 20160304
  Serious: Yes (Other)
  Sender: FDA-Public Use
  Company Number: IT-KADMON PHARMACEUTICALS, LLC-KAD201507-002376

PATIENT
  Age: 75 Year
  Sex: Male
  Weight: 119 kg

DRUGS (5)
  1. NORVASC 5 MG [Concomitant]
     Dosage: TABLET
  2. CARDICOR 1.25 MG [Concomitant]
     Active Substance: BISOPROLOL FUMARATE
     Dosage: TABLET
  3. RIBAVIRIN. [Suspect]
     Active Substance: RIBAVIRIN
     Indication: CHRONIC HEPATITIS C
     Dates: start: 20150605, end: 20150709
  4. OMEPRAZOLE. [Concomitant]
     Active Substance: OMEPRAZOLE
  5. SOVALDI [Suspect]
     Active Substance: SOFOSBUVIR
     Indication: CHRONIC HEPATITIS C
     Dosage: TABLET
     Dates: start: 20150605, end: 20150709

REACTIONS (1)
  - Acute kidney injury [Unknown]

NARRATIVE: CASE EVENT DATE: 20150703
